FAERS Safety Report 24762260 (Version 1)
Quarter: 2024Q4

REPORT INFORMATION
  Report Type: Report from Study
  Country: TW (occurrence: TW)
  Receive Date: 20241221
  Receipt Date: 20241221
  Transmission Date: 20250114
  Serious: Yes (Hospitalization)
  Sender: ABBVIE
  Company Number: TW-ABBVIE-6054667

PATIENT
  Age: 66 Year
  Sex: Female
  Weight: 69 kg

DRUGS (1)
  1. HUMIRA [Suspect]
     Active Substance: ADALIMUMAB
     Indication: Rheumatoid arthritis
     Route: 058
     Dates: start: 20191004, end: 20241009

REACTIONS (2)
  - Musculoskeletal discomfort [Unknown]
  - Bone abscess [Unknown]

NARRATIVE: CASE EVENT DATE: 20240901
